FAERS Safety Report 5960377-2 (Version None)
Quarter: 2008Q4

REPORT INFORMATION
  Report Type: 
  Country: None (occurrence: None)
  Receive Date: 20081114
  Receipt Date: 20080814
  Transmission Date: 20090506
  Serious: Yes (Hospitalization)
  Sender: FDA-Public Use
  Company Number: 2008S1000270

PATIENT
  Sex: Female
  Weight: 73.5 kg

DRUGS (6)
  1. CUBICIN [Suspect]
     Indication: ABSCESS
     Dosage: 4 MG/KG;Q24H;IV
     Route: 042
  2. AZITHROMYCIN [Concomitant]
  3. LEVOFLOXACIN [Concomitant]
  4. TRIMETHOPRIM [Concomitant]
  5. SULFAMETHOXAZOLE [Concomitant]
  6. CEFTRIAXONE [Concomitant]

REACTIONS (1)
  - THROMBOCYTOPENIA [None]
